FAERS Safety Report 21873099 (Version 1)
Quarter: 2023Q1

REPORT INFORMATION
  Report Type: Report from Study
  Country: US (occurrence: None)
  Receive Date: 20230117
  Receipt Date: 20230117
  Transmission Date: 20230418
  Serious: Yes (Hospitalization)
  Sender: FDA-Public Use
  Company Number: US-ROCHE-3263385

PATIENT
  Age: 66 Year
  Sex: Female
  Weight: 117.9 kg

DRUGS (3)
  1. TOCILIZUMAB [Suspect]
     Active Substance: TOCILIZUMAB
     Indication: Metastatic malignant melanoma
     Dosage: ON 09/NOV/2022, LAST DOSE OF STUDY DRUG.
     Route: 042
     Dates: start: 20221109
  2. NIVOLUMAB [Suspect]
     Active Substance: NIVOLUMAB
     Indication: Metastatic malignant melanoma
     Dosage: ON 30/NOV/2022, RECEIVED LAST DOSE
     Route: 042
     Dates: start: 20221109
  3. IPILIMUMAB [Suspect]
     Active Substance: IPILIMUMAB
     Indication: Metastatic malignant melanoma
     Dosage: ON 30/NOV/2022, LAST DOSE OF STUDY DRUG
     Route: 042
     Dates: start: 20221109

REACTIONS (1)
  - Hyperglycaemia [Recovered/Resolved with Sequelae]

NARRATIVE: CASE EVENT DATE: 20230104
